FAERS Safety Report 10170046 (Version 1)
Quarter: 2014Q2

REPORT INFORMATION
  Report Type: Spontaneous
  Country: US (occurrence: US)
  Receive Date: 20140513
  Receipt Date: 20140513
  Transmission Date: 20141212
  Serious: Yes (Hospitalization)
  Sender: FDA-Public Use
  Company Number: US-B.I. PHARMACEUTICALS,INC./RIDGEFIELD-2014-BI-20843BP

PATIENT
  Age: 68 Year
  Sex: Female

DRUGS (7)
  1. SPIRIVA [Suspect]
     Indication: CHRONIC OBSTRUCTIVE PULMONARY DISEASE
     Dosage: 18 MCG
     Route: 055
  2. OXYCODONE [Concomitant]
     Indication: BACK PAIN
     Dosage: 5 MG
     Route: 048
  3. PROMETHAZINE [Concomitant]
     Indication: NAUSEA
     Dosage: 25 MG
     Route: 048
  4. PROBIOTICS [Concomitant]
     Route: 048
  5. PROAIR [Concomitant]
     Indication: CHRONIC OBSTRUCTIVE PULMONARY DISEASE
     Route: 055
  6. SINGULAIR [Concomitant]
     Indication: CHRONIC OBSTRUCTIVE PULMONARY DISEASE
     Dosage: 10 MG
     Route: 048
  7. WARFARIN [Concomitant]
     Indication: THROMBOSIS
     Route: 048

REACTIONS (8)
  - Intervertebral disc disorder [Recovered/Resolved]
  - Clostridial infection [Recovered/Resolved]
  - Dyspnoea [Recovered/Resolved]
  - Immune system disorder [Not Recovered/Not Resolved]
  - Bronchitis [Recovered/Resolved]
  - Urinary tract infection [Not Recovered/Not Resolved]
  - Memory impairment [Not Recovered/Not Resolved]
  - Gait disturbance [Recovered/Resolved]
